FAERS Safety Report 9064932 (Version 1)
Quarter: 2013Q1

REPORT INFORMATION
  Report Type: Spontaneous
  Country: ES (occurrence: ES)
  Receive Date: 20130206
  Receipt Date: 20130206
  Transmission Date: 20140127
  Serious: Yes (Death, Hospitalization)
  Sender: FDA-Public Use
  Company Number: ES-ROCHE-1186230

PATIENT
  Age: 65 Year
  Sex: Male

DRUGS (3)
  1. PEGASYS [Suspect]
     Indication: CHRONIC HEPATITIS C
     Route: 058
     Dates: start: 20120827, end: 20121224
  2. COPEGUS [Suspect]
     Indication: CHRONIC HEPATITIS C
     Route: 048
     Dates: start: 20120827, end: 20121225
  3. INCIVO [Suspect]
     Indication: CHRONIC HEPATITIS C
     Route: 048
     Dates: start: 20120827, end: 20121117

REACTIONS (5)
  - Acute respiratory distress syndrome [Fatal]
  - Drug eruption [Recovered/Resolved]
  - Bacteraemia [Fatal]
  - Multi-organ failure [Fatal]
  - Septic shock [Fatal]
